FAERS Safety Report 7515630-8 (Version None)
Quarter: 2011Q2

REPORT INFORMATION
  Report Type: 
  Country: None (occurrence: None)
  Receive Date: 20110601
  Receipt Date: 20100727
  Transmission Date: 20111010
  Serious: Yes (Other)
  Sender: FDA-Public Use
  Company Number: US-PFIZER INC-2010095009

PATIENT
  Sex: Female
  Weight: 77.098 kg

DRUGS (6)
  1. LEVOTHYROXINE [Concomitant]
     Indication: THYROID DISORDER
     Dosage: UNK
  2. CHANTIX [Suspect]
     Dosage: 1 MG, 2X/DAY
     Route: 048
     Dates: start: 20100701, end: 20100725
  3. CYMBALTA [Concomitant]
     Indication: DEPRESSION
     Dosage: UNK
  4. CELEBREX [Concomitant]
     Indication: ARTHRITIS
     Dosage: UNK
  5. CHANTIX [Suspect]
     Indication: SMOKING CESSATION THERAPY
     Dosage: 0.5 MG, DAILY
     Route: 048
     Dates: start: 20100701, end: 20100701
  6. BUSPAR [Concomitant]
     Indication: ANXIETY
     Dosage: UNK

REACTIONS (9)
  - DEPRESSED MOOD [None]
  - VOMITING [None]
  - OROPHARYNGEAL BLISTERING [None]
  - HEADACHE [None]
  - NAUSEA [None]
  - PHARYNGEAL OEDEMA [None]
  - MIGRAINE [None]
  - DRY MOUTH [None]
  - DYSPNOEA [None]
